FAERS Safety Report 15253425 (Version 1)
Quarter: 2018Q3

REPORT INFORMATION
  Report Type: Spontaneous
  Country: IT (occurrence: IT)
  Receive Date: 20180808
  Receipt Date: 20180808
  Transmission Date: 20181010
  Serious: Yes (Life-Threatening, Hospitalization, Other)
  Sender: FDA-Public Use
  Company Number: IT-AUROBINDO-AUR-APL-2018-038057

PATIENT
  Sex: Female

DRUGS (1)
  1. IBUPROFEN. [Suspect]
     Active Substance: IBUPROFEN
     Indication: PATENT DUCTUS ARTERIOSUS
     Dosage: 10 MILLIGRAM/KILOGRAM, DAILY

REACTIONS (3)
  - Persistent foetal circulation [Recovered/Resolved]
  - Respiratory acidosis [Recovered/Resolved]
  - Respiratory failure [Recovered/Resolved]
